FAERS Safety Report 8467874-9 (Version None)
Quarter: 2012Q2

REPORT INFORMATION
  Report Type: 
  Country: None (occurrence: None)
  Receive Date: 20120626
  Receipt Date: 20120621
  Transmission Date: 20120825
  Serious: Yes (Other)
  Sender: FDA-Public Use
  Company Number: FR-ROCHE-1040627

PATIENT
  Age: 50 Year
  Sex: Male

DRUGS (5)
  1. COPEGUS [Suspect]
     Indication: HEPATITIS C
     Route: 048
     Dates: start: 20111028
  2. INCIVO [Suspect]
     Indication: HEPATITIS C
     Route: 048
     Dates: start: 20111028, end: 20120120
  3. REYATAZ [Concomitant]
     Dates: start: 20060101
  4. TRUVADA [Concomitant]
     Dates: start: 20060101
  5. PEGASYS [Suspect]
     Indication: HEPATITIS C
     Route: 058
     Dates: start: 20111028

REACTIONS (3)
  - DYSAESTHESIA [None]
  - ASTHENIA [None]
  - POLLAKIURIA [None]
